FAERS Safety Report 14897095 (Version 1)
Quarter: 2018Q2

REPORT INFORMATION
  Report Type: Spontaneous
  Country: MX (occurrence: MX)
  Receive Date: 20180515
  Receipt Date: 20180515
  Transmission Date: 20180711
  Serious: Yes (Hospitalization, Other)
  Sender: FDA-Public Use
  Company Number: MX-GILEAD-2018-0338579

PATIENT
  Age: 71 Year
  Sex: Female

DRUGS (11)
  1. SPIRONOLACTONE. [Concomitant]
     Active Substance: SPIRONOLACTONE
  2. LEVOTHYROXINE. [Concomitant]
     Active Substance: LEVOTHYROXINE
  3. FUROSEMIDE. [Concomitant]
     Active Substance: FUROSEMIDE
  4. HEPAMERZ                           /01390201/ [Concomitant]
  5. LOSARTAN. [Concomitant]
     Active Substance: LOSARTAN
  6. LACTULOSE. [Concomitant]
     Active Substance: LACTULOSE
  7. PROPRANOLOL [Concomitant]
     Active Substance: PROPRANOLOL HYDROCHLORIDE
  8. RIBAVIRIN. [Suspect]
     Active Substance: RIBAVIRIN
     Indication: CHRONIC HEPATITIS C
     Dosage: UNK
     Route: 065
     Dates: start: 20180406
  9. GLIBENCLAMIDE [Concomitant]
     Active Substance: GLYBURIDE
  10. JARVONI [Suspect]
     Active Substance: LEDIPASVIR\SOFOSBUVIR
     Indication: CHRONIC HEPATITIS C
     Dosage: UNK
     Route: 048
     Dates: start: 20180406
  11. TRAYENTA [Concomitant]
     Active Substance: LINAGLIPTIN

REACTIONS (5)
  - Diarrhoea [Unknown]
  - Ascites [Not Recovered/Not Resolved]
  - Hepatic cirrhosis [Unknown]
  - Vomiting [Unknown]
  - Hepatic encephalopathy [Recovering/Resolving]
